FAERS Safety Report 26048251 (Version 1)
Quarter: 2025Q4

REPORT INFORMATION
  Report Type: Spontaneous
  Country: US (occurrence: None)
  Receive Date: 20251114
  Receipt Date: 20251114
  Transmission Date: 20260118
  Serious: Yes (Other)
  Sender: FDA-CTU
  Company Number: None

PATIENT
  Age: 88 Year
  Sex: Female
  Weight: 83.3 kg

DRUGS (1)
  1. DALBAVANCIN [Suspect]
     Active Substance: DALBAVANCIN
     Indication: Cellulitis
     Dates: start: 20251109, end: 20251109

REACTIONS (3)
  - International normalised ratio increased [None]
  - Cellulitis [None]
  - Atrial fibrillation [None]

NARRATIVE: CASE EVENT DATE: 20251113
